FAERS Safety Report 4353407-5 (Version None)
Quarter: 2004Q2

REPORT INFORMATION
  Report Type: 
  Country: None (occurrence: None)
  Receive Date: 20040504
  Receipt Date: 20040420
  Transmission Date: 20050107
  Serious: Yes (Death)
  Sender: FDA-Public Use
  Company Number: 2004S1001162

PATIENT
  Age: 71 Year
  Sex: Male

DRUGS (1)
  1. CLOZAPINE [Suspect]
     Dosage: 25 MG QHS, ORAL
     Route: 048
     Dates: end: 20040316

REACTIONS (1)
  - GENERAL PHYSICAL HEALTH DETERIORATION [None]
